FAERS Safety Report 8652986 (Version 2)
Quarter: 2013Q1

REPORT INFORMATION
  Report Type: Spontaneous
  Country: US (occurrence: US)
  Receive Date: 20120706
  Receipt Date: 20130219
  Transmission Date: 20140127
  Serious: Yes (Life-Threatening)
  Sender: FDA-Public Use
  Company Number: US-JNJFOC-20120701713

PATIENT
  Sex: Female

DRUGS (2)
  1. BENADRYL ALLERGY LIQUIGEL [Suspect]
     Indication: PRODUCT USED FOR UNKNOWN INDICATION
     Dosage: BENADRYL DYE FREE LIQUID GELS 24S??USA 312547170215 1254717021USA
     Route: 065
  2. PRESCRIPTION MEDICATION , NOS [Suspect]
     Indication: PRODUCT USED FOR UNKNOWN INDICATION
     Route: 065

REACTIONS (1)
  - Suicide attempt [Unknown]
